FAERS Safety Report 4495384-2 (Version None)
Quarter: 2004Q4

REPORT INFORMATION
  Report Type: 
  Country: None (occurrence: None)
  Receive Date: 20041103
  Receipt Date: 20041019
  Transmission Date: 20050328
  Serious: Yes (Death)
  Sender: FDA-Public Use
  Company Number: 8007739

PATIENT
  Age: 16 Year
  Sex: Female

DRUGS (3)
  1. ACETAMINOPHEN AND HYDROCODONE BITARTRATE [Suspect]
     Dosage: PO
     Route: 048
     Dates: end: 20030101
  2. ACETAMINOPHEN [Suspect]
     Dosage: PO
     Route: 048
     Dates: end: 20030101
  3. IBUPROFEN [Suspect]
     Dosage: PO
     Route: 048
     Dates: end: 20030101

REACTIONS (11)
  - ALANINE AMINOTRANSFERASE INCREASED [None]
  - ASPARTATE AMINOTRANSFERASE INCREASED [None]
  - BLOOD BICARBONATE DECREASED [None]
  - BLOOD PH DECREASED [None]
  - BLOOD PRESSURE DECREASED [None]
  - BODY TEMPERATURE DECREASED [None]
  - COMA [None]
  - HEART RATE INCREASED [None]
  - METABOLIC ACIDOSIS [None]
  - MULTIPLE DRUG OVERDOSE [None]
  - VOMITING [None]
